FAERS Safety Report 4512342-X (Version None)
Quarter: 2004Q4

REPORT INFORMATION
  Report Type: 
  Country: None (occurrence: None)
  Receive Date: 20041129
  Receipt Date: 20041111
  Transmission Date: 20050328
  Serious: Yes (Other)
  Sender: FDA-Public Use
  Company Number: SE-GLAXOSMITHKLINE-B0358131A

PATIENT
  Age: 9 Year
  Sex: Female

DRUGS (3)
  1. SEREVENT [Suspect]
     Indication: ASTHMA
     Dosage: 50MCG TWICE PER DAY
     Route: 055
     Dates: start: 19940830
  2. BRICANYL [Concomitant]
     Route: 055
  3. PULMICORT [Concomitant]
     Route: 055

REACTIONS (3)
  - AGGRESSION [None]
  - ENURESIS [None]
  - INSOMNIA [None]
